FAERS Safety Report 20314637 (Version 1)
Quarter: 2022Q1

REPORT INFORMATION
  Report Type: Spontaneous
  Country: US (occurrence: US)
  Receive Date: 20220110
  Receipt Date: 20220110
  Transmission Date: 20220423
  Serious: Yes (Death, Hospitalization)
  Sender: FDA-Public Use
  Company Number: US-BAYER-2022A001190

PATIENT
  Age: 34 Year
  Sex: Male

DRUGS (8)
  1. ASPIRIN [Suspect]
     Active Substance: ASPIRIN
     Route: 048
  2. FENTANYL [Suspect]
     Active Substance: FENTANYL
  3. PROPRANOLOL [Suspect]
     Active Substance: PROPRANOLOL HYDROCHLORIDE
  4. ALCOHOL [Suspect]
     Active Substance: ALCOHOL
  5. ACETAMINOPHEN [Suspect]
     Active Substance: ACETAMINOPHEN
  6. CITALOPRAM [Suspect]
     Active Substance: CITALOPRAM HYDROBROMIDE
  7. METHAMPHETAMINE [Suspect]
     Active Substance: METHAMPHETAMINE
  8. MIRTAZAPINE [Suspect]
     Active Substance: MIRTAZAPINE

REACTIONS (1)
  - Toxicity to various agents [Fatal]
